FAERS Safety Report 9241029 (Version 1)
Quarter: 2013Q1

REPORT INFORMATION
  Report Type: Spontaneous
  Country: US (occurrence: None)
  Receive Date: 20121120
  Receipt Date: 20121120
  Transmission Date: 20140127
  Serious: No
  Sender: FDA-Public Use
  Company Number: 1000039346

PATIENT
  Age: 39 Year
  Sex: Female

DRUGS (2)
  1. VIIBRYD [Suspect]
     Indication: DEPRESSION
     Dosage: 10MG (10MG, 1 IN 1 D), ORAL
     Route: 048
     Dates: start: 201210
  2. TRAZODONE [Suspect]
     Indication: INSOMNIA
     Dates: start: 201210, end: 201210

REACTIONS (2)
  - Insomnia [None]
  - Headache [None]
